FAERS Safety Report 10194620 (Version 2)
Quarter: 2014Q2

REPORT INFORMATION
  Report Type: Spontaneous
  Country: US (occurrence: US)
  Receive Date: 20140526
  Receipt Date: 20140620
  Transmission Date: 20141212
  Serious: No
  Sender: FDA-Public Use
  Company Number: US-BIOGENIDEC-2014BI045033

PATIENT
  Age: 44 Year
  Sex: Female

DRUGS (4)
  1. TECFIDERA [Suspect]
     Indication: MULTIPLE SCLEROSIS
     Route: 048
     Dates: start: 20130702
  2. EXCEDRIN MIGRAINE [Concomitant]
     Indication: MIGRAINE
  3. GABAPENTIN [Concomitant]
  4. METOPROLOL TARTRATE [Concomitant]

REACTIONS (1)
  - Drug ineffective [Unknown]
